FAERS Safety Report 21800682 (Version 1)
Quarter: 2022Q4

REPORT INFORMATION
  Report Type: Report from Study
  Country: US (occurrence: US)
  Receive Date: 20221230
  Receipt Date: 20221230
  Transmission Date: 20230113
  Serious: No
  Sender: FDA-Public Use
  Company Number: US-ABBVIE-4218684

PATIENT
  Age: 65 Year
  Sex: Male

DRUGS (1)
  1. HUMIRA [Suspect]
     Active Substance: ADALIMUMAB
     Indication: Psoriatic arthropathy
     Dosage: FORM STRENGTH: 40 MG
     Route: 058

REACTIONS (6)
  - Pain in extremity [Unknown]
  - Escherichia infection [Recovered/Resolved]
  - Dizziness postural [Unknown]
  - Diabetes mellitus [Unknown]
  - Hypertension [Unknown]
  - Feeling hot [Unknown]

NARRATIVE: CASE EVENT DATE: 20220901
